FAERS Safety Report 10630800 (Version 1)
Quarter: 2014Q4

REPORT INFORMATION
  Report Type: Spontaneous
  Country: US (occurrence: None)
  Receive Date: 20141203
  Receipt Date: 20141203
  Transmission Date: 20150529
  Serious: Yes (Hospitalization, Disabling, Other)
  Sender: FDA-Public Use
  Company Number: None

PATIENT
  Age: 60 Year
  Sex: Female
  Weight: 72.58 kg

DRUGS (1)
  1. LIPITOR [Suspect]
     Active Substance: ATORVASTATIN CALCIUM
     Indication: CAROTID ARTERY OCCLUSION
     Dosage: 1 PILL
     Route: 048
     Dates: start: 20130825, end: 20140909

REACTIONS (9)
  - Demyelination [None]
  - Weight increased [None]
  - Abdominal pain [None]
  - Myalgia [None]
  - Sciatica [None]
  - Musculoskeletal pain [None]
  - Arthralgia [None]
  - Cholelithiasis [None]
  - Activities of daily living impaired [None]

NARRATIVE: CASE EVENT DATE: 20141202
